FAERS Safety Report 4313532-1 (Version None)
Quarter: 2004Q1

REPORT INFORMATION
  Report Type: 
  Country: None (occurrence: None)
  Receive Date: 20040308
  Receipt Date: 20040212
  Transmission Date: 20041129
  Serious: Yes (Other)
  Sender: FDA-Public Use
  Company Number: JP-GLAXOSMITHKLINE-B0323491A

PATIENT
  Age: 71 Year
  Sex: Male

DRUGS (5)
  1. PAXIL [Suspect]
     Indication: ALCOHOLISM
     Dosage: 20MG PER DAY
     Route: 048
     Dates: start: 20040119, end: 20040208
  2. LEVOMEPROMAZINE MALEATE [Suspect]
     Route: 048
     Dates: start: 20031225, end: 20040224
  3. SULPIRIDE [Concomitant]
     Dosage: 50MG PER DAY
     Route: 048
     Dates: start: 20030225
  4. ETHYL LOFLAZEPATE [Concomitant]
     Dosage: 1MG PER DAY
     Route: 048
     Dates: start: 20030225
  5. BIPERIDEN HYDROCHLORIDE [Concomitant]
     Dosage: 3MG PER DAY
     Route: 048
     Dates: start: 20040204

REACTIONS (5)
  - DELIRIUM [None]
  - DEMENTIA [None]
  - DYSPHAGIA [None]
  - INCONTINENCE [None]
  - SALIVARY HYPERSECRETION [None]
